FAERS Safety Report 4975721-2 (Version None)
Quarter: 2006Q2

REPORT INFORMATION
  Report Type: 
  Country: None (occurrence: None)
  Receive Date: 20060411
  Receipt Date: 20060329
  Transmission Date: 20061013
  Serious: Yes (Life-Threatening)
  Sender: FDA-Public Use
  Company Number: 2006042873

PATIENT
  Age: 72 Year
  Sex: Female

DRUGS (11)
  1. DIFLUCAN [Suspect]
     Indication: DIVERTICULUM
     Dosage: 200 MG (200 MG, EVERY DAY), INTRAVENOUS
     Route: 042
     Dates: start: 20060213, end: 20060218
  2. DEPAKENE [Suspect]
     Indication: EPILEPSY
     Dosage: SEE IMAGE
     Dates: start: 20060212, end: 20060219
  3. DEPAKENE [Suspect]
     Indication: EPILEPSY
     Dosage: SEE IMAGE
     Dates: start: 20060220
  4. FLAGYL I.V. [Suspect]
     Indication: DIVERTICULUM
     Dosage: 1500 MG (500 MG, 3 IN 1 D), INTRAVENOUS
     Route: 042
     Dates: start: 20060211, end: 20060225
  5. NEXIUM [Suspect]
     Indication: GASTRIC ULCER
     Dosage: SEE IMAGE
     Dates: start: 20060211, end: 20060219
  6. NEXIUM [Suspect]
     Indication: GASTRIC ULCER
     Dosage: SEE IMAGE
     Dates: start: 20060220, end: 20060225
  7. ROCEPHIN [Concomitant]
  8. HYDROCORTISONE [Concomitant]
  9. TRAMADOL HCL [Concomitant]
  10. ALL OTHER THERAPEUTIC PRODUCTS (ALL OTHER THERAPEUTIC PRODUCTS) [Concomitant]
  11. DEXAMETHASONE [Concomitant]

REACTIONS (8)
  - ANAEMIA [None]
  - CEREBRAL VENOUS THROMBOSIS [None]
  - CHOLESTASIS [None]
  - DRUG LEVEL INCREASED [None]
  - HYPERNATRAEMIA [None]
  - HYPOKALAEMIA [None]
  - PROTHROMBIN LEVEL DECREASED [None]
  - STATUS EPILEPTICUS [None]
